FAERS Safety Report 9672365 (Version 1)
Quarter: 2013Q4

REPORT INFORMATION
  Report Type: Report from Study
  Country: US (occurrence: US)
  Receive Date: 20131106
  Receipt Date: 20131106
  Transmission Date: 20140711
  Serious: Yes (Other)
  Sender: FDA-Public Use
  Company Number: PHEH2013US023120

PATIENT
  Sex: Male

DRUGS (1)
  1. TOBI [Suspect]
     Dosage: 300 MG, BID

REACTIONS (15)
  - Chronic obstructive pulmonary disease [Unknown]
  - Bronchiectasis [Unknown]
  - Hypoxia [Unknown]
  - Defect conduction intraventricular [Unknown]
  - Post polio syndrome [Unknown]
  - Coronary artery disease [Unknown]
  - Colon adenoma [Unknown]
  - Pulmonary mass [Unknown]
  - Hypertension [Unknown]
  - Hyperlipidaemia [Unknown]
  - Rectal polyp [Unknown]
  - Chest injury [Unknown]
  - Deformity thorax [Unknown]
  - Accident [Unknown]
  - Benign prostatic hyperplasia [Unknown]
